FAERS Safety Report 5177491-4 (Version None)
Quarter: 2006Q4

REPORT INFORMATION
  Report Type: 
  Country: None (occurrence: None)
  Receive Date: 20061218
  Receipt Date: 20061204
  Transmission Date: 20070319
  Serious: Yes (Hospitalization)
  Sender: FDA-Public Use
  Company Number: FR-ELI_LILLY_AND_COMPANY-FR200612000352

PATIENT
  Age: 63 Year
  Sex: Female

DRUGS (6)
  1. FORTEO [Suspect]
     Indication: OSTEOPOROSIS
     Dosage: 20 UG, DAILY (1/D)
     Route: 058
     Dates: start: 20060906
  2. TAREG [Concomitant]
     Indication: HYPERTENSION
     Dosage: 80 MG, DAILY (1/D)
  3. LANZOR [Concomitant]
     Indication: HIATUS HERNIA
     Dosage: 1 D/F, DAILY (1/D)
  4. NORSET [Concomitant]
     Indication: ANXIETY DISORDER
     Dosage: 15 MG, 2/D
  5. EFFERALGAN [Concomitant]
     Indication: PAIN
     Dosage: 1 G, 4/D
  6. ACTISKENAN [Concomitant]
     Indication: PAIN
     Dosage: 10 MG, 4/D

REACTIONS (1)
  - THORACIC VERTEBRAL FRACTURE [None]
